FAERS Safety Report 23048877 (Version 1)
Quarter: 2023Q4

REPORT INFORMATION
  Report Type: Spontaneous
  Country: DE (occurrence: DE)
  Receive Date: 20231010
  Receipt Date: 20231010
  Transmission Date: 20240109
  Serious: Yes (Life-Threatening, Hospitalization, Other)
  Sender: FDA-Public Use
  Company Number: None

PATIENT
  Age: 36 Year
  Sex: Male
  Weight: 89 kg

DRUGS (15)
  1. QUETIAPINE FUMARATE [Suspect]
     Active Substance: QUETIAPINE FUMARATE
     Indication: Pain management
  2. TAVOR (LORAZEPAM) [Suspect]
     Active Substance: LORAZEPAM
     Indication: Product used for unknown indication
  3. ZOLPIDEM TARTRATE [Suspect]
     Active Substance: ZOLPIDEM TARTRATE
     Indication: Sleep disorder
     Dates: start: 20230202
  4. ALPELISIB [Suspect]
     Active Substance: ALPELISIB
     Indication: PIK3CA related overgrowth spectrum
     Dosage: 125 MG, Q24H (EVERY 24 HOURS)
     Dates: start: 20220609
  5. TILIDINE [Concomitant]
     Active Substance: TILIDINE
     Dates: start: 20230104
  6. OMEGA 3 [Concomitant]
     Active Substance: CAPSAICIN
     Dates: start: 20210301
  7. TAZOBACTAM SODIUM [Concomitant]
     Active Substance: TAZOBACTAM SODIUM
     Dates: start: 20230217, end: 20230222
  8. IRON\MINERALS\VITAMINS [Concomitant]
     Active Substance: IRON\MINERALS\VITAMINS
     Dates: start: 20140414
  9. CYANOCOBALAMIN [Concomitant]
     Active Substance: CYANOCOBALAMIN
     Dates: start: 20080915
  10. ENOXAPARIN [Concomitant]
     Active Substance: ENOXAPARIN
     Dates: start: 20230116
  11. BIOSAN [Concomitant]
     Dates: start: 20210301
  12. MELATONIN [Concomitant]
     Active Substance: MELATONIN
     Dates: start: 20210115
  13. PSYLLIUM [Concomitant]
     Active Substance: PLANTAGO SEED
     Dates: start: 20150216
  14. CHOLECALCIFEROL [Concomitant]
     Active Substance: CHOLECALCIFEROL
     Dates: start: 20210809
  15. AMOXICILLIN [Concomitant]
     Active Substance: AMOXICILLIN
     Indication: Antibiotic prophylaxis
     Dates: start: 20230223, end: 20230606

REACTIONS (6)
  - Anxiety [Unknown]
  - Poisoning [Unknown]
  - Agitation [Unknown]
  - Mental impairment [Unknown]
  - Psychiatric decompensation [Unknown]
  - Suicide attempt [Recovered/Resolved]

NARRATIVE: CASE EVENT DATE: 20230224
